FAERS Safety Report 13523045 (Version 1)
Quarter: 2017Q2

REPORT INFORMATION
  Report Type: Spontaneous
  Country: DE (occurrence: DE)
  Receive Date: 20170508
  Receipt Date: 20170508
  Transmission Date: 20170830
  Serious: Yes (Hospitalization)
  Sender: FDA-Public Use
  Company Number: DE-MYLANLABS-2017M1027148

PATIENT

DRUGS (15)
  1. DOXEPIN [Suspect]
     Active Substance: DOXEPIN
     Dosage: 55 MG, UNK
     Route: 048
     Dates: start: 20160902, end: 20160906
  2. REMERGIL [Suspect]
     Active Substance: MIRTAZAPINE
     Dosage: 30 MG, UNK
     Route: 048
     Dates: start: 20160824, end: 20160829
  3. DIAZEPAM. [Concomitant]
     Active Substance: DIAZEPAM
     Dosage: 11 MG, UNK
     Dates: start: 20160907
  4. DOXEPIN [Suspect]
     Active Substance: DOXEPIN
     Dosage: 20 MG, UNK
     Route: 048
     Dates: start: 20160901, end: 20160901
  5. REMERGIL [Suspect]
     Active Substance: MIRTAZAPINE
     Dosage: 30 MG, UNK
     Route: 048
     Dates: start: 20160910, end: 20160918
  6. DIAZEPAM. [Concomitant]
     Active Substance: DIAZEPAM
     Dosage: 40 MG, UNK
     Dates: start: 20160723
  7. REMERGIL [Suspect]
     Active Substance: MIRTAZAPINE
     Dosage: 45 MG, UNK
     Route: 048
     Dates: start: 20160830, end: 20160909
  8. DOXEPIN [Suspect]
     Active Substance: DOXEPIN
     Dosage: 175 MG, UNK
     Route: 048
     Dates: start: 20160907, end: 20160910
  9. KINZALMONO [Concomitant]
     Active Substance: TELMISARTAN
     Dates: start: 201601
  10. SEROQUEL [Concomitant]
     Active Substance: QUETIAPINE FUMARATE
     Dates: start: 20160915
  11. REMERGIL [Suspect]
     Active Substance: MIRTAZAPINE
     Dosage: 7.5 MG, UNK
     Route: 048
     Dates: start: 20160816, end: 20160817
  12. REMERGIL [Suspect]
     Active Substance: MIRTAZAPINE
     Dosage: 15 MG, UNK
     Route: 048
     Dates: start: 20160817, end: 20160823
  13. BISOHEXAL [Concomitant]
     Active Substance: BISOPROLOL FUMARATE
     Dates: start: 201601
  14. ELIQUIS [Concomitant]
     Active Substance: APIXABAN
     Dates: start: 201601
  15. MAGNESIUM VERLA N DRAGEES [Concomitant]
     Dates: start: 20160719

REACTIONS (1)
  - Hyponatraemia [Recovering/Resolving]

NARRATIVE: CASE EVENT DATE: 20160909
